FAERS Safety Report 22018577 (Version 4)
Quarter: 2023Q2

REPORT INFORMATION
  Report Type: Spontaneous
  Country: JP (occurrence: JP)
  Receive Date: 20230222
  Receipt Date: 20230522
  Transmission Date: 20230722
  Serious: Yes (Hospitalization)
  Sender: FDA-Public Use
  Company Number: JP-JNJFOC-20230246034

PATIENT
  Age: 78 Year
  Sex: Male
  Weight: 64 kg

DRUGS (3)
  1. ERLEADA [Suspect]
     Active Substance: APALUTAMIDE
     Indication: Hormone-refractory prostate cancer
     Route: 048
     Dates: start: 20221024, end: 20221107
  2. ERLEADA [Suspect]
     Active Substance: APALUTAMIDE
     Route: 048
     Dates: start: 20221121, end: 20230116
  3. ZOLADEX [Concomitant]
     Active Substance: GOSERELIN ACETATE
     Route: 065
     Dates: start: 20221024

REACTIONS (2)
  - Enanthema [Recovering/Resolving]
  - Rash [Recovered/Resolved]

NARRATIVE: CASE EVENT DATE: 20221107
